FAERS Safety Report 25034328 (Version 1)
Quarter: 2025Q1

REPORT INFORMATION
  Report Type: Spontaneous
  Country: US (occurrence: US)
  Receive Date: 20250304
  Receipt Date: 20250304
  Transmission Date: 20250409
  Serious: No
  Sender: ROCHE
  Company Number: US-ROCHE-10000217063

PATIENT
  Sex: Female

DRUGS (2)
  1. XOLAIR PFS [Suspect]
     Active Substance: OMALIZUMAB
     Indication: Dermatitis allergic
     Dosage: STRENGTH: 150 MG/ML AND 75 MG/0.5 ML
     Route: 058
     Dates: start: 202412
  2. XOLAIR PFS [Suspect]
     Active Substance: OMALIZUMAB
     Indication: Asthma
     Dosage: STRENGTH: 75 MG/0.5 ML
     Route: 058
     Dates: start: 202412

REACTIONS (1)
  - Drug ineffective [Unknown]
